FAERS Safety Report 14239532 (Version 1)
Quarter: 2017Q4

REPORT INFORMATION
  Report Type: Spontaneous
  Country: US (occurrence: None)
  Receive Date: 20171129
  Receipt Date: 20171129
  Transmission Date: 20180321
  Serious: Yes (Death, Life-Threatening, Hospitalization)
  Sender: FDA-Public Use
  Company Number: None

PATIENT
  Age: 64 Year
  Sex: Male
  Weight: 59 kg

DRUGS (2)
  1. IPILIMUMAB [Suspect]
     Active Substance: IPILIMUMAB
     Indication: SURGERY
     Route: 042
     Dates: start: 20170509, end: 20170703
  2. SIMVASTATIN. [Suspect]
     Active Substance: SIMVASTATIN
     Indication: HYPERLIPIDAEMIA
     Route: 048
     Dates: start: 20150324, end: 20170827

REACTIONS (10)
  - Small intestinal obstruction [None]
  - Blood glucose decreased [None]
  - Large intestinal obstruction [None]
  - Asthenia [None]
  - Hepatitis fulminant [None]
  - Bronchopulmonary aspergillosis [None]
  - International normalised ratio abnormal [None]
  - Inguinal hernia [None]
  - Abdominal pain upper [None]
  - Acute hepatic failure [None]

NARRATIVE: CASE EVENT DATE: 20170814
